FAERS Safety Report 19995687 (Version 1)
Quarter: 2021Q4

REPORT INFORMATION
  Report Type: Spontaneous
  Country: US (occurrence: US)
  Receive Date: 20211026
  Receipt Date: 20211026
  Transmission Date: 20220304
  Serious: Yes (Other)
  Sender: FDA-Public Use
  Company Number: None

PATIENT
  Age: 57 Year
  Sex: Female
  Weight: 83.25 kg

DRUGS (1)
  1. BARICITINIB [Suspect]
     Active Substance: BARICITINIB
     Indication: Coronavirus infection
     Dosage: ?          QUANTITY:2 TABLET(S);
     Route: 048
     Dates: start: 20210924, end: 20210927

REACTIONS (14)
  - COVID-19 [None]
  - Cold sweat [None]
  - Malaise [None]
  - Asthenia [None]
  - Eye pain [None]
  - Feeling abnormal [None]
  - Pain in extremity [None]
  - Gait disturbance [None]
  - Paraesthesia [None]
  - Peripheral coldness [None]
  - Sensitive skin [None]
  - Ocular hyperaemia [None]
  - Dyspepsia [None]
  - Glassy eyes [None]

NARRATIVE: CASE EVENT DATE: 20210928
